FAERS Safety Report 7116157-8 (Version None)
Quarter: 2010Q4

REPORT INFORMATION
  Report Type: 
  Country: None (occurrence: None)
  Receive Date: 20101122
  Receipt Date: 20101110
  Transmission Date: 20110411
  Serious: Yes (Other)
  Sender: FDA-Public Use
  Company Number: PHHY2010FR77332

PATIENT
  Sex: Female

DRUGS (3)
  1. RASILEZ [Suspect]
     Indication: HYPERTENSION
     Dosage: 150 MG, QD
     Route: 048
  2. COVERAM [Concomitant]
     Indication: HYPERTENSION
  3. TEMERIT [Concomitant]
     Indication: HYPERTENSION

REACTIONS (3)
  - EOSINOPHILIA [None]
  - PAIN [None]
  - POLYNEUROPATHY [None]
